FAERS Safety Report 12144183 (Version 1)
Quarter: 2016Q1

REPORT INFORMATION
  Report Type: Spontaneous
  Country: US (occurrence: None)
  Receive Date: 20160303
  Receipt Date: 20160303
  Transmission Date: 20160526
  Serious: Yes (Disabling)
  Sender: FDA-Public Use
  Company Number: None

PATIENT
  Age: 23 Year
  Sex: Male
  Weight: 81.65 kg

DRUGS (1)
  1. MEFLOQUINE [Suspect]
     Active Substance: MEFLOQUINE
     Indication: MALARIA PROPHYLAXIS
     Dosage: TAKEN BY MOUTH
     Dates: start: 19921207, end: 19930310

REACTIONS (3)
  - Depression [None]
  - Suicidal ideation [None]
  - Nightmare [None]

NARRATIVE: CASE EVENT DATE: 19930301
